FAERS Safety Report 17846558 (Version 1)
Quarter: 2020Q2

REPORT INFORMATION
  Report Type: Spontaneous
  Country: ES (occurrence: ES)
  Receive Date: 20200601
  Receipt Date: 20200601
  Transmission Date: 20200714
  Serious: Yes (Death)
  Sender: FDA-Public Use
  Company Number: ES-MYLANLABS-2020M1052272

PATIENT
  Age: 88 Year
  Sex: Male
  Weight: 69 kg

DRUGS (9)
  1. DISTRANEURINE                      /00027501/ [Concomitant]
     Active Substance: CLOMETHIAZOLE
     Indication: DEMENTIA ALZHEIMER^S TYPE
     Dosage: 1 CAPSULA CADA 8 HORAS
     Dates: start: 20180315
  2. RIVOTRIL [Concomitant]
     Active Substance: CLONAZEPAM
     Indication: DEMENTIA ALZHEIMER^S TYPE
     Dosage: 3 COMPRIMIDO CADA D?A
     Dates: start: 20180711
  3. MEMANTINA                          /00646901/ [Concomitant]
     Active Substance: MEMANTINE
     Indication: DEMENTIA ALZHEIMER^S TYPE
     Dosage: 1 COMPRIMIDO CADA D?A
     Dates: start: 20180315
  4. METFORMIN [Suspect]
     Active Substance: METFORMIN HYDROCHLORIDE
     Indication: TYPE 2 DIABETES MELLITUS
     Dosage: 1 COMPRIMIDO A MEDIOD?A, 1 COMPRIMIDO EN LA CENA
     Dates: start: 20101019
  5. LISINOPRIL + HIDROCLOROTIAZIDA [Concomitant]
     Active Substance: HYDROCHLOROTHIAZIDE\LISINOPRIL
     Indication: HYPERTENSION
     Dosage: 1 COMPRIMIDO CADA D?A
     Dates: start: 20130520
  6. QUETIAPINA                         /01270901/ [Concomitant]
     Active Substance: QUETIAPINE
     Indication: DEMENTIA ALZHEIMER^S TYPE
     Dosage: 1 COMPRIMIDO CADA D?A
     Dates: start: 20180315
  7. DEPRAX                             /00447702/ [Concomitant]
     Active Substance: TRAZODONE HYDROCHLORIDE
     Indication: DEMENTIA ALZHEIMER^S TYPE
     Dosage: 1 COMPRIMIDO CADA D?A
     Dates: start: 20180315
  8. DIAZEPAM. [Concomitant]
     Active Substance: DIAZEPAM
     Indication: AGITATION
     Dosage: 1 ENVASE CADA 90 D?A/S
     Dates: start: 20190226
  9. ABASAGLAR [Concomitant]
     Active Substance: INSULIN GLARGINE
     Indication: TYPE 2 DIABETES MELLITUS
     Dosage: 10UI EN EL DESAYUNO PRE-FILLED PENS INJECT SOLUTION
     Dates: start: 20190314

REACTIONS (1)
  - Lactic acidosis [Fatal]

NARRATIVE: CASE EVENT DATE: 20190417
